FAERS Safety Report 13844275 (Version 2)
Quarter: 2017Q4

REPORT INFORMATION
  Report Type: Spontaneous
  Country: US (occurrence: US)
  Receive Date: 20170808
  Receipt Date: 20171011
  Transmission Date: 20180320
  Serious: Yes (Death)
  Sender: FDA-Public Use
  Company Number: US-PFIZER INC-2017342914

PATIENT
  Age: 99 Year
  Sex: Female
  Weight: 52.16 kg

DRUGS (1)
  1. DISOPYRAMIDE PHOSPHATE. [Suspect]
     Active Substance: DISOPYRAMIDE PHOSPHATE
     Indication: ATRIAL FIBRILLATION
     Dosage: UNK, 2X/DAY
     Route: 048

REACTIONS (2)
  - Hypophagia [Fatal]
  - Death [Fatal]

NARRATIVE: CASE EVENT DATE: 201705
